FAERS Safety Report 7788228-4 (Version None)
Quarter: 2011Q3

REPORT INFORMATION
  Report Type: 
  Country: None (occurrence: None)
  Receive Date: 20110930
  Receipt Date: 20110927
  Transmission Date: 20111222
  Serious: Yes (Life-Threatening, Hospitalization)
  Sender: FDA-Public Use
  Company Number: NL-GENZYME-CLOF-1001731

PATIENT
  Sex: Male
  Weight: 82 kg

DRUGS (5)
  1. CYTARABINE [Suspect]
     Indication: ACUTE MYELOID LEUKAEMIA
     Dosage: 410 MG, QD
     Route: 042
     Dates: start: 20110708, end: 20110714
  2. LASIX [Concomitant]
     Dosage: 40 MG, UNK
     Route: 042
     Dates: start: 20110730
  3. EVOLTRA [Suspect]
     Indication: ACUTE MYELOID LEUKAEMIA
     Dosage: 20 MG; 2 DAYS
     Route: 042
     Dates: start: 20110708, end: 20110709
  4. LASIX [Concomitant]
     Indication: PRODUCT USED FOR UNKNOWN INDICATION
     Dosage: 2 DD 20 MG
     Route: 065
     Dates: start: 20110730
  5. IDARUBICIN HCL [Suspect]
     Indication: ACUTE MYELOID LEUKAEMIA
     Dosage: 24 MG, UNK
     Route: 042
     Dates: start: 20110708, end: 20110710

REACTIONS (1)
  - CARDIAC FAILURE [None]
